FAERS Safety Report 9803286 (Version 1)
Quarter: 2014Q1

REPORT INFORMATION
  Report Type: Spontaneous
  Country: US (occurrence: None)
  Receive Date: 20140107
  Receipt Date: 20140107
  Transmission Date: 20141002
  Serious: Yes (Life-Threatening)
  Sender: FDA-Public Use
  Company Number: None

PATIENT
  Age: 38 Year
  Sex: Male
  Weight: 90.7 kg

DRUGS (1)
  1. BATH SALTS [Suspect]
     Dates: start: 20130905

REACTIONS (3)
  - Agitation [None]
  - Hallucination [None]
  - Refusal of treatment by patient [None]
